FAERS Safety Report 6585471-7 (Version None)
Quarter: 2010Q1

REPORT INFORMATION
  Report Type: 
  Country: None (occurrence: None)
  Receive Date: 20100217
  Receipt Date: 20100211
  Transmission Date: 20100710
  Serious: Yes (Other)
  Sender: FDA-Public Use
  Company Number: A0844205A

PATIENT
  Age: 33 Year
  Sex: Female
  Weight: 176 kg

DRUGS (1)
  1. ALLI [Suspect]
     Indication: DRUG USE FOR UNKNOWN INDICATION
     Dates: start: 20100204

REACTIONS (1)
  - RECTAL HAEMORRHAGE [None]
